FAERS Safety Report 5530510-5 (Version None)
Quarter: 2007Q4

REPORT INFORMATION
  Report Type: 
  Country: None (occurrence: None)
  Receive Date: 20071119
  Receipt Date: 20071008
  Transmission Date: 20080405
  Serious: No
  Sender: FDA-Public Use
  Company Number: TPA2007A02063

PATIENT
  Age: 55 Year
  Sex: Female
  Weight: 72.1219 kg

DRUGS (14)
  1. ROZEREM [Suspect]
     Indication: INITIAL INSOMNIA
     Dosage: 8 MG, QHS, PER ORAL
     Route: 048
     Dates: start: 20070926
  2. ROZEREM [Suspect]
     Indication: MIDDLE INSOMNIA
     Dosage: 8 MG, QHS, PER ORAL
     Route: 048
     Dates: start: 20070926
  3. KEPPRA [Concomitant]
  4. AMBIEN CR [Concomitant]
  5. LIPITOR [Concomitant]
  6. SYNTHROID [Concomitant]
  7. CYTOMEL [Concomitant]
  8. LISINOPRIL [Concomitant]
  9. CYMBALTA [Concomitant]
  10. HYDROCHLOROTHIAZIDE [Concomitant]
  11. WELLBUTRIN [Concomitant]
  12. ACIPHEX [Concomitant]
  13. LAMICTAL [Concomitant]
  14. LITHOBID [Concomitant]

REACTIONS (1)
  - DRUG INEFFECTIVE [None]
